FAERS Safety Report 5726231-6 (Version None)
Quarter: 2008Q2

REPORT INFORMATION
  Report Type: 
  Country: None (occurrence: None)
  Receive Date: 20080502
  Receipt Date: 20080502
  Transmission Date: 20081010
  Serious: Yes (Disabling)
  Sender: FDA-Public Use
  Company Number: None

PATIENT
  Age: 47 Year
  Sex: Female
  Weight: 70.3075 kg

DRUGS (2)
  1. HEPARIN [Suspect]
     Indication: CENTRAL VENOUS CATHETERISATION
     Dosage: 3-5 ML 2X DAY IT
     Route: 037
     Dates: start: 20070919, end: 20071005
  2. HEPARIN [Suspect]
     Indication: PULMONARY EMBOLISM
     Dosage: 3-5 ML 2X DAY IT
     Route: 037
     Dates: start: 20070919, end: 20071005

REACTIONS (2)
  - CYSTITIS [None]
  - PULMONARY EMBOLISM [None]
